FAERS Safety Report 23744537 (Version 1)
Quarter: 2024Q2

REPORT INFORMATION
  Report Type: Spontaneous
  Country: PT (occurrence: PT)
  Receive Date: 20240415
  Receipt Date: 20240415
  Transmission Date: 20240715
  Serious: Yes (Hospitalization, Other)
  Sender: FDA-Public Use
  Company Number: PT-GILEAD-2024-0668889

PATIENT
  Age: 67 Year
  Sex: Female

DRUGS (8)
  1. TRODELVY [Suspect]
     Active Substance: SACITUZUMAB GOVITECAN-HZIY
     Indication: Triple negative breast cancer
     Dosage: 10 MG/KG,D1 AND D8 Q21D
     Route: 042
  2. ACETAMINOPHEN [Concomitant]
     Active Substance: ACETAMINOPHEN
     Dosage: 1 G
     Route: 048
  3. FAMOTIDINE [Concomitant]
     Active Substance: FAMOTIDINE
     Dosage: 10 MG/KG
     Route: 048
  4. CLEMASTINE [Concomitant]
     Active Substance: CLEMASTINE
     Dosage: 2 MG
     Route: 042
  5. DEXAMETHASONE [Concomitant]
     Active Substance: DEXAMETHASONE
     Dosage: 20 MG IV
  6. DEXAMETHASONE [Concomitant]
     Active Substance: DEXAMETHASONE
     Dosage: 8 MG D2-D5
  7. ONDANSETRON [Concomitant]
     Active Substance: ONDANSETRON
     Dosage: 8 MG IV
  8. ONDANSETRON [Concomitant]
     Active Substance: ONDANSETRON
     Dosage: 8 MG D2-D5

REACTIONS (7)
  - Acute kidney injury [Unknown]
  - Urinary tract infection [Unknown]
  - Dehydration [Unknown]
  - Hypotension [Unknown]
  - Diarrhoea [Unknown]
  - Metastases to meninges [Unknown]
  - Diarrhoea [Unknown]
